FAERS Safety Report 15292729 (Version 1)
Quarter: 2018Q3

REPORT INFORMATION
  Report Type: Spontaneous
  Country: US (occurrence: US)
  Receive Date: 20180819
  Receipt Date: 20180819
  Transmission Date: 20181010
  Serious: No
  Sender: FDA-Public Use
  Company Number: US-009507513-1808USA004551

PATIENT
  Age: 26 Year
  Sex: Female

DRUGS (1)
  1. NEXPLANON [Suspect]
     Active Substance: ETONOGESTREL
     Indication: CONTRACEPTION
     Dosage: 68 MG, EVERY THREE YEARS
     Route: 059
     Dates: start: 20170519, end: 20170708

REACTIONS (1)
  - Rash [Unknown]

NARRATIVE: CASE EVENT DATE: 20170708
